FAERS Safety Report 5150724-6 (Version None)
Quarter: 2006Q4

REPORT INFORMATION
  Report Type: 
  Country: None (occurrence: None)
  Receive Date: 20061114
  Receipt Date: 20050502
  Transmission Date: 20070319
  Serious: Yes (Hospitalization)
  Sender: FDA-Public Use
  Company Number: FR-SANOFI-SYNTHELABO-A02200501195

PATIENT
  Sex: Male

DRUGS (7)
  1. CORTANCYL [Suspect]
     Indication: RHEUMATOID ARTHRITIS
     Dosage: UNK
     Route: 048
     Dates: start: 20010503
  2. KETOPROFEN [Suspect]
     Indication: DRUG USE FOR UNKNOWN INDICATION
     Route: 048
     Dates: start: 20010223
  3. PLAQUENIL [Suspect]
     Indication: RHEUMATOID ARTHRITIS
     Route: 048
  4. VITAMINS [Concomitant]
     Dosage: UNK
     Route: 065
  5. CALCIUM [Concomitant]
     Dosage: UNK
     Route: 065
  6. ETIDRONATE DISODIUM [Concomitant]
     Dosage: UNK
     Route: 065
  7. KINERET [Suspect]
     Indication: RHEUMATOID ARTHRITIS
     Dosage: UNK
     Route: 058
     Dates: start: 20020417, end: 20050115

REACTIONS (1)
  - MALIGNANT MELANOMA [None]
